FAERS Safety Report 7812397-0 (Version None)
Quarter: 2011Q4

REPORT INFORMATION
  Report Type: 
  Country: None (occurrence: None)
  Receive Date: 20111013
  Receipt Date: 20111011
  Transmission Date: 20120403
  Serious: Yes (Life-Threatening)
  Sender: FDA-Public Use
  Company Number: US-JNJFOC-20111005228

PATIENT
  Sex: Female
  Weight: 108.86 kg

DRUGS (1)
  1. SIMPONI [Suspect]
     Indication: RHEUMATOID ARTHRITIS
     Route: 058
     Dates: start: 20091005, end: 20110125

REACTIONS (3)
  - CARDIAC DISORDER [None]
  - OEDEMA PERIPHERAL [None]
  - WEIGHT INCREASED [None]
